FAERS Safety Report 4937708-5 (Version None)
Quarter: 2006Q1

REPORT INFORMATION
  Report Type: 
  Country: None (occurrence: None)
  Receive Date: 20060308
  Receipt Date: 20060308
  Transmission Date: 20060701
  Serious: Yes (Life-Threatening)
  Sender: FDA-Public Use
  Company Number: None

PATIENT
  Age: 64 Year
  Sex: Female
  Weight: 85.7298 kg

DRUGS (2)
  1. ONXOL 300 MG MAYNE [Suspect]
     Dosage: 341 Q 2 WEEKS IV
     Route: 042
     Dates: start: 20051027
  2. ONXOL 300 MG MAYNE [Suspect]
     Dosage: 341 Q 2 WEEKS IV
     Route: 042
     Dates: start: 20051115

REACTIONS (2)
  - CHEST DISCOMFORT [None]
  - DYSPNOEA [None]
